FAERS Safety Report 12276690 (Version 1)
Quarter: 2016Q2

REPORT INFORMATION
  Report Type: Spontaneous
  Country: US (occurrence: None)
  Receive Date: 20160415
  Receipt Date: 20160415
  Transmission Date: 20160815
  Serious: Yes (Other)
  Sender: FDA-Public Use
  Company Number: None

PATIENT
  Age: 44 Year
  Sex: Female
  Weight: 52.16 kg

DRUGS (2)
  1. STOOL SOFTENER [Concomitant]
     Active Substance: DOCUSATE CALCIUM
  2. ONDANSETRON 8MG, 8 MG RANBAXY [Suspect]
     Active Substance: ONDANSETRON
     Indication: NAUSEA
     Dosage: 10 TABLET(S) AS NEEDED TAKEN BY MOUTH
     Route: 048
     Dates: start: 20160408, end: 20160414

REACTIONS (2)
  - Large intestinal obstruction [None]
  - Constipation [None]

NARRATIVE: CASE EVENT DATE: 20160413
